FAERS Safety Report 26084291 (Version 1)
Quarter: 2025Q4

REPORT INFORMATION
  Report Type: Spontaneous
  Country: US (occurrence: US)
  Receive Date: 20251124
  Receipt Date: 20251124
  Transmission Date: 20260118
  Serious: No
  Sender: PRASCO
  Company Number: US-Prasco Laboratories-PRAS20250390

PATIENT
  Age: 67 Year
  Sex: Male

DRUGS (3)
  1. DEXAMETHASONE [Suspect]
     Active Substance: DEXAMETHASONE
     Indication: Product used for unknown indication
     Dosage: UNKNOWN
     Route: 065
  2. DUPIXENT [Suspect]
     Active Substance: DUPILUMAB
     Indication: Asthma
     Dosage: 600 MG LOADING DOSE ONE TIME
     Route: 058
     Dates: start: 202503
  3. DUPIXENT [Suspect]
     Active Substance: DUPILUMAB
     Dosage: 300 MG QOW
     Route: 058
     Dates: start: 2025

REACTIONS (5)
  - Stress fracture [Recovering/Resolving]
  - Bone loss [Recovering/Resolving]
  - Gout [Recovering/Resolving]
  - Arthritis [Recovering/Resolving]
  - Arthralgia [Recovering/Resolving]
